FAERS Safety Report 22300150 (Version 1)
Quarter: 2023Q2

REPORT INFORMATION
  Report Type: Spontaneous
  Country: US (occurrence: None)
  Receive Date: 20230508
  Receipt Date: 20230508
  Transmission Date: 20230722
  Serious: Yes (Hospitalization)
  Sender: FDA-Public Use
  Company Number: None

PATIENT
  Age: 85 Year
  Sex: Female

DRUGS (1)
  1. XELODA [Suspect]
     Active Substance: CAPECITABINE
     Dosage: FREQUENCY : TWICE A DAY;?
     Route: 048
     Dates: end: 20230504

REACTIONS (7)
  - Dehydration [None]
  - Diarrhoea [None]
  - Fatigue [None]
  - Decubitus ulcer [None]
  - Blood pressure decreased [None]
  - Flatulence [None]
  - Decreased appetite [None]

NARRATIVE: CASE EVENT DATE: 20230504
